FAERS Safety Report 18754036 (Version 1)
Quarter: 2021Q1

REPORT INFORMATION
  Report Type: Spontaneous
  Country: CA (occurrence: CA)
  Receive Date: 20210119
  Receipt Date: 20210119
  Transmission Date: 20210419
  Serious: Yes (Hospitalization, Other)
  Sender: FDA-Public Use
  Company Number: CA-AMGEN-CANSP2021007575

PATIENT
  Age: 55 Year
  Sex: Female

DRUGS (1)
  1. AIMOVIG [Suspect]
     Active Substance: ERENUMAB-AOOE
     Indication: MIGRAINE
     Dosage: 70 MILLIGRAM, QMO
     Route: 058

REACTIONS (8)
  - Acute kidney injury [Unknown]
  - Memory impairment [Unknown]
  - Status epilepticus [Unknown]
  - Ankle fracture [Unknown]
  - Periorbital haematoma [Unknown]
  - Unresponsive to stimuli [Unknown]
  - Inappropriate schedule of product administration [Unknown]
  - Hypokalaemia [Unknown]
